FAERS Safety Report 10745764 (Version 1)
Quarter: 2015Q1

REPORT INFORMATION
  Report Type: Spontaneous
  Country: US (occurrence: None)
  Receive Date: 20150127
  Receipt Date: 20150127
  Transmission Date: 20150721
  Serious: No
  Sender: FDA-Public Use
  Company Number: None

PATIENT
  Age: 55 Year
  Sex: Female
  Weight: 71.67 kg

DRUGS (2)
  1. RESTASIS [Suspect]
     Active Substance: CYCLOSPORINE
     Dosage: ONE DROP EACH EYE EERY 12 HOURS
     Route: 047
     Dates: start: 20141021, end: 20150126
  2. RESTASIS [Suspect]
     Active Substance: CYCLOSPORINE
     Indication: DRY EYE
     Dosage: ONE DROP EACH EYE EERY 12 HOURS
     Route: 047
     Dates: start: 20141021, end: 20150126

REACTIONS (5)
  - Blepharospasm [None]
  - Glaucoma [None]
  - Eye irritation [None]
  - Immunodeficiency [None]
  - Ocular hyperaemia [None]

NARRATIVE: CASE EVENT DATE: 20150119
